FAERS Safety Report 4707878-2 (Version None)
Quarter: 2005Q2

REPORT INFORMATION
  Report Type: 
  Country: None (occurrence: None)
  Receive Date: 20050629
  Receipt Date: 20050315
  Transmission Date: 20051028
  Serious: No
  Sender: FDA-Public Use
  Company Number: 05P-163-0294405-00

PATIENT
  Age: 54 Year
  Sex: Male
  Weight: 73.9363 kg

DRUGS (5)
  1. HUMIRA [Suspect]
     Indication: RHEUMATOID ARTHRITIS
     Dosage: 40 MG, 2 IN 1 M, SUBCUTANEOUS
     Route: 058
     Dates: start: 20041201
  2. FENOFIBRATE [Concomitant]
  3. METHOTREXATE [Concomitant]
  4. FOLIC ACID [Concomitant]
  5. VICODIN [Concomitant]

REACTIONS (3)
  - CYST [None]
  - NASOPHARYNGITIS [None]
  - RASH [None]
